FAERS Safety Report 8506516-0 (Version None)
Quarter: 2012Q3

REPORT INFORMATION
  Report Type: 
  Country: None (occurrence: None)
  Receive Date: 20120712
  Receipt Date: 20120405
  Transmission Date: 20120928
  Serious: No
  Sender: FDA-Public Use
  Company Number: US-GLAXOSMITHKLINE-A0962716A

PATIENT
  Age: 60 Year
  Sex: Male
  Weight: 95 kg

DRUGS (8)
  1. SYNTHROID [Concomitant]
     Dosage: 150MCG PER DAY
     Route: 048
     Dates: start: 20111101
  2. ABILIFY [Concomitant]
     Dosage: 10MG PER DAY
     Route: 048
     Dates: start: 20060601
  3. DALMANE [Concomitant]
     Dosage: 30MG PER DAY
     Route: 048
     Dates: start: 20111101
  4. LEXAPRO [Concomitant]
     Route: 048
  5. UNSPECIFIED MEDICATION [Concomitant]
     Dosage: 5MG WEEKLY
     Route: 048
  6. SEROQUEL [Concomitant]
     Dosage: 200MG FOUR TIMES PER DAY
     Route: 048
     Dates: start: 20111101
  7. JALYN [Suspect]
     Indication: BENIGN PROSTATIC HYPERPLASIA
     Dosage: 1CAP SINGLE DOSE
     Route: 048
     Dates: start: 20120119, end: 20120119
  8. ZOCOR [Concomitant]
     Dosage: 40MG PER DAY
     Route: 048
     Dates: start: 20060101

REACTIONS (4)
  - POLLAKIURIA [None]
  - URINARY INCONTINENCE [None]
  - MICTURITION DISORDER [None]
  - HYPERURICAEMIA [None]
